FAERS Safety Report 9584801 (Version 3)
Quarter: 2013Q4

REPORT INFORMATION
  Report Type: Spontaneous
  Country: JP (occurrence: JP)
  Receive Date: 20131002
  Receipt Date: 20131025
  Transmission Date: 20140711
  Serious: Yes (Hospitalization)
  Sender: FDA-Public Use
  Company Number: JP-ABBVIE-11P-087-0882836-00

PATIENT
  Age: 59 Year
  Sex: Female
  Weight: 55.3 kg

DRUGS (11)
  1. HUMIRA 40 MG/ 0.8 ML PRE-FILLED SYRINGE [Suspect]
     Indication: RHEUMATOID ARTHRITIS
     Route: 058
     Dates: start: 20101206, end: 20111212
  2. ISONIAZID [Suspect]
     Indication: PRODUCT USED FOR UNKNOWN INDICATION
     Dates: start: 20120207, end: 20120808
  3. RIFAMPICIN [Suspect]
     Indication: PRODUCT USED FOR UNKNOWN INDICATION
     Dates: start: 20120207, end: 20120808
  4. PYRAMIDE [Suspect]
     Indication: PRODUCT USED FOR UNKNOWN INDICATION
     Dates: start: 20120207, end: 20120808
  5. ETHAMBUTOL HYDROCHLORIDE [Suspect]
     Indication: PRODUCT USED FOR UNKNOWN INDICATION
     Dates: start: 20120207, end: 20120404
  6. KEISHIKAJUTSUBUTO [Concomitant]
     Indication: RHEUMATOID ARTHRITIS
     Route: 048
     Dates: start: 20110315
  7. MAKYOYOKUKANTO [Concomitant]
     Indication: RHEUMATOID ARTHRITIS
     Route: 048
     Dates: end: 20110315
  8. NITRENDIPINE [Concomitant]
     Indication: HYPERTENSION
     Route: 048
  9. ATORVASTATIN CALCIUM HYDRATE [Concomitant]
     Indication: DYSLIPIDAEMIA
     Route: 048
  10. AMLODIPINE BESILATE [Concomitant]
     Indication: HYPERTENSION
     Route: 048
  11. ATORVASTATIN CALCIUM HYDRATE [Concomitant]
     Indication: PRODUCT USED FOR UNKNOWN INDICATION
     Route: 048

REACTIONS (11)
  - Tubulointerstitial nephritis [Not Recovered/Not Resolved]
  - Pulmonary tuberculosis [Recovered/Resolved]
  - Drug-induced liver injury [Recovered/Resolved]
  - Blood creatine increased [Unknown]
  - Blood urine present [Unknown]
  - Lysozyme increased [Unknown]
  - Angiotensin converting enzyme increased [Unknown]
  - Lymphadenopathy [Unknown]
  - Computerised tomogram thorax abnormal [Unknown]
  - Lymphadenopathy [Unknown]
  - Blood creatinine increased [Unknown]
